FAERS Safety Report 6636819-6 (Version None)
Quarter: 2010Q1

REPORT INFORMATION
  Report Type: 
  Country: None (occurrence: None)
  Receive Date: 20100316
  Receipt Date: 20100305
  Transmission Date: 20100710
  Serious: Yes (Death)
  Sender: FDA-Public Use
  Company Number: AT-GENZYME-CLOF-1000893

PATIENT
  Sex: Female
  Weight: 50 kg

DRUGS (2)
  1. EVOLTRA [Suspect]
     Indication: ACUTE MYELOID LEUKAEMIA
     Dosage: 30 MG/M2, QDX5
     Route: 042
     Dates: start: 20100125, end: 20100129
  2. TROPISETRON [Concomitant]
     Indication: PROPHYLAXIS
     Dosage: UNK UNK, UNK
     Route: 065
     Dates: start: 20100125, end: 20100129

REACTIONS (1)
  - DISEASE PROGRESSION [None]
